FAERS Safety Report 15467308 (Version 1)
Quarter: 2018Q4

REPORT INFORMATION
  Report Type: Spontaneous
  Country: IT (occurrence: IT)
  Receive Date: 20181005
  Receipt Date: 20181005
  Transmission Date: 20190204
  Serious: Yes (Disabling, Other)
  Sender: FDA-Public Use
  Company Number: IT-IBIGEN-2018.04926

PATIENT
  Age: 61 Year
  Sex: Female

DRUGS (10)
  1. UNK [Suspect]
     Active Substance: UNSPECIFIED INGREDIENT
  2. UNK [Suspect]
     Active Substance: UNSPECIFIED INGREDIENT
  3. UNK [Suspect]
     Active Substance: UNSPECIFIED INGREDIENT
  4. UNK [Suspect]
     Active Substance: UNSPECIFIED INGREDIENT
  5. UNK [Suspect]
     Active Substance: UNSPECIFIED INGREDIENT
  6. UNK [Suspect]
     Active Substance: UNSPECIFIED INGREDIENT
  7. UNK [Suspect]
     Active Substance: UNSPECIFIED INGREDIENT
  8. UNK [Suspect]
     Active Substance: UNSPECIFIED INGREDIENT
  9. UNK [Suspect]
     Active Substance: UNSPECIFIED INGREDIENT
  10. UNK [Suspect]
     Active Substance: UNSPECIFIED INGREDIENT

REACTIONS (1)
  - Guillain-Barre syndrome [Recovered/Resolved]
